FAERS Safety Report 20844517 (Version 2)
Quarter: 2022Q3

REPORT INFORMATION
  Report Type: Spontaneous
  Country: US (occurrence: US)
  Receive Date: 20220518
  Receipt Date: 20220817
  Transmission Date: 20221026
  Serious: No
  Sender: FDA-Public Use
  Company Number: US-PFIZER INC-202200700291

PATIENT
  Age: 53 Year
  Sex: Female
  Weight: 93.44 kg

DRUGS (1)
  1. PAXLOVID [Suspect]
     Active Substance: NIRMATRELVIR\RITONAVIR
     Indication: COVID-19 treatment
     Dosage: THREE TABLETS, 100MG OF RITONAVIRAND 300MG OF NIRMATRELVIR
     Dates: start: 20220510

REACTIONS (3)
  - Intentional dose omission [Unknown]
  - Dysgeusia [Not Recovered/Not Resolved]
  - Regurgitation [Unknown]

NARRATIVE: CASE EVENT DATE: 20220501
